FAERS Safety Report 5753540-7 (Version None)
Quarter: 2008Q2

REPORT INFORMATION
  Report Type: 
  Country: None (occurrence: None)
  Receive Date: 20080530
  Receipt Date: 20080519
  Transmission Date: 20081010
  Serious: Yes (Other)
  Sender: FDA-Public Use
  Company Number: US-ROCHE-559264

PATIENT
  Sex: Male

DRUGS (11)
  1. CELLCEPT [Suspect]
     Route: 048
     Dates: start: 20020101
  2. CELLCEPT [Suspect]
     Route: 048
  3. PROGRAF [Suspect]
     Route: 048
  4. RAPAMUNE [Concomitant]
     Route: 048
  5. PREDNISONE TAB [Concomitant]
     Route: 048
  6. CELEXA [Concomitant]
     Route: 048
  7. VALIUM [Concomitant]
     Dosage: DOSAGE RECEIVED IN THE EVENING.
     Route: 048
  8. MULTIVITAMIN NOS [Concomitant]
  9. TYLENOL [Concomitant]
     Route: 048
  10. TUMS [Concomitant]
  11. VIT D [Concomitant]

REACTIONS (14)
  - ANOREXIA [None]
  - CEREBRAL ATROPHY [None]
  - DEHYDRATION [None]
  - DEPRESSION [None]
  - GAIT DISTURBANCE [None]
  - HAEMOGLOBIN DECREASED [None]
  - HYPOGEUSIA [None]
  - LIBIDO DECREASED [None]
  - OPTIC ATROPHY [None]
  - OPTIC NEURITIS [None]
  - PAPILLITIS [None]
  - RETINAL HAEMORRHAGE [None]
  - SPEECH DISORDER [None]
  - VITAMIN D DEFICIENCY [None]
